FAERS Safety Report 14132025 (Version 2)
Quarter: 2018Q4

REPORT INFORMATION
  Report Type: Spontaneous
  Country: FR (occurrence: FR)
  Receive Date: 20171027
  Receipt Date: 20181024
  Transmission Date: 20190204
  Serious: Yes (Hospitalization)
  Sender: FDA-Public Use
  Company Number: FR-ROCHE-1711517

PATIENT
  Age: 48 Year
  Sex: Female
  Weight: 47 kg

DRUGS (4)
  1. PERJETA [Suspect]
     Active Substance: PERTUZUMAB
     Indication: BREAST CANCER
     Route: 065
     Dates: end: 201401
  2. HERCEPTIN [Suspect]
     Active Substance: TRASTUZUMAB
     Indication: BREAST CANCER
     Route: 065
  3. TAXOL [Concomitant]
     Active Substance: PACLITAXEL
  4. TAMOXIFENE [Concomitant]
     Active Substance: TAMOXIFEN

REACTIONS (4)
  - Metrorrhagia [Recovered/Resolved]
  - Photopsia [Recovering/Resolving]
  - Vitreous floaters [Unknown]
  - Diarrhoea [Unknown]

NARRATIVE: CASE EVENT DATE: 201411
